FAERS Safety Report 15655950 (Version 1)
Quarter: 2018Q4

REPORT INFORMATION
  Report Type: Spontaneous
  Country: US (occurrence: US)
  Receive Date: 20181126
  Receipt Date: 20181126
  Transmission Date: 20190205
  Serious: No
  Sender: FDA-Public Use
  Company Number: US-UNICHEM PHARMACEUTICALS (USA) INC-UCM201809-000225

PATIENT
  Age: 48 Year
  Sex: Male

DRUGS (1)
  1. AMLODIPINE [Suspect]
     Active Substance: AMLODIPINE BESYLATE

REACTIONS (5)
  - Somnolence [Unknown]
  - Blood pressure increased [Unknown]
  - Impaired work ability [Unknown]
  - Heart rate decreased [Unknown]
  - Lethargy [Unknown]
